FAERS Safety Report 21144466 (Version 17)
Quarter: 2025Q1

REPORT INFORMATION
  Report Type: Spontaneous
  Country: US (occurrence: US)
  Receive Date: 20220728
  Receipt Date: 20250103
  Transmission Date: 20250409
  Serious: Yes (Other)
  Sender: PFIZER
  Company Number: US-PFIZER INC-2021650928

PATIENT
  Age: 53 Year
  Sex: Female

DRUGS (3)
  1. BOSULIF [Suspect]
     Active Substance: BOSUTINIB MONOHYDRATE
     Indication: Acute lymphocytic leukaemia
     Dosage: 400 MG, 1X/DAY
     Route: 048
     Dates: start: 20231102, end: 20231121
  2. BOSULIF [Suspect]
     Active Substance: BOSUTINIB MONOHYDRATE
     Indication: Philadelphia chromosome positive
  3. BOSULIF [Suspect]
     Active Substance: BOSUTINIB MONOHYDRATE
     Indication: Chronic myeloid leukaemia
     Dosage: 400 MG, DAILY
     Route: 048

REACTIONS (9)
  - Renal failure [Unknown]
  - Alopecia [Unknown]
  - Neurological symptom [Unknown]
  - Coordination abnormal [Unknown]
  - Balance disorder [Unknown]
  - Dysgraphia [Unknown]
  - Brain fog [Unknown]
  - Nervousness [Unknown]
  - Illness [Unknown]

NARRATIVE: CASE EVENT DATE: 20241201
